FAERS Safety Report 8882302 (Version 5)
Quarter: 2013Q2

REPORT INFORMATION
  Report Type: Spontaneous
  Country: US (occurrence: US)
  Receive Date: 20121105
  Receipt Date: 20130417
  Transmission Date: 20140414
  Serious: No
  Sender: FDA-Public Use
  Company Number: US-009507513-1210USA010225

PATIENT
  Age: 55 Year
  Sex: Female
  Weight: 87.53 kg

DRUGS (8)
  1. VICTRELIS [Suspect]
     Indication: CHRONIC HEPATITIS C
     Dosage: 4 DF (TOTAL 800 MG), TID
     Route: 048
     Dates: start: 20121020
  2. REBETOL [Suspect]
     Indication: CHRONIC HEPATITIS C
     Dosage: UNK
     Dates: start: 20120914
  3. PEGASYS [Suspect]
     Indication: CHRONIC HEPATITIS C
     Dosage: 180 MICROGRAM, QW
     Dates: start: 20120914
  4. CLARITHROMYCIN [Concomitant]
     Indication: GASTRIC INFECTION
     Dosage: UNK
     Dates: end: 20121013
  5. CLARITHROMYCIN [Concomitant]
     Indication: ABDOMINAL DISCOMFORT
  6. METFORMIN [Concomitant]
     Dosage: UNK
  7. LISINOPRIL [Concomitant]
  8. SYMBICORT [Concomitant]
     Dosage: 1 PUFF DAILY

REACTIONS (8)
  - Abdominal discomfort [Not Recovered/Not Resolved]
  - Onychoclasis [Unknown]
  - Nail disorder [Unknown]
  - Nail bed bleeding [Unknown]
  - Dysgeusia [Not Recovered/Not Resolved]
  - Anaemia [Recovering/Resolving]
  - Nausea [Not Recovered/Not Resolved]
  - Fatigue [Unknown]
